FAERS Safety Report 6917448-3 (Version None)
Quarter: 2010Q3

REPORT INFORMATION
  Report Type: 
  Country: None (occurrence: None)
  Receive Date: 20100810
  Receipt Date: 20100803
  Transmission Date: 20110219
  Serious: Yes (Hospitalization)
  Sender: FDA-Public Use
  Company Number: PHHO2010DE10980

PATIENT
  Sex: Male
  Weight: 86 kg

DRUGS (4)
  1. CYCLOSPORINE [Suspect]
     Indication: RENAL TRANSPLANT
     Dosage: UNK
     Dates: start: 20081208, end: 20090107
  2. MYFORTIC [Suspect]
     Indication: RENAL TRANSPLANT
     Dosage: UNK
     Dates: start: 20081228, end: 20090107
  3. NO TREATMENT RECEIVED NOMED [Suspect]
     Indication: RENAL TRANSPLANT
     Dosage: UNK
  4. URBASON [Suspect]
     Indication: RENAL TRANSPLANT
     Dosage: UNK
     Dates: start: 20081208

REACTIONS (2)
  - DUODENITIS HAEMORRHAGIC [None]
  - GASTRIC ULCER HAEMORRHAGE [None]
